FAERS Safety Report 15013495 (Version 1)
Quarter: 2018Q2

REPORT INFORMATION
  Report Type: Report from Study
  Country: US (occurrence: US)
  Receive Date: 20180614
  Receipt Date: 20180614
  Transmission Date: 20180711
  Serious: Yes (Other)
  Sender: FDA-Public Use
  Company Number: US-GILEAD-2018-0343871

PATIENT
  Age: 75 Year
  Sex: Male

DRUGS (5)
  1. RANOLAZINE. [Suspect]
     Active Substance: RANOLAZINE
     Indication: ATRIAL FIBRILLATION
  2. RANOLAZINE. [Suspect]
     Active Substance: RANOLAZINE
     Indication: ATRIAL FLUTTER
  3. RANOLAZINE. [Suspect]
     Active Substance: RANOLAZINE
     Indication: ARRHYTHMIA
     Dosage: 500 MG, BID
     Route: 048
  4. RANOLAZINE. [Suspect]
     Active Substance: RANOLAZINE
     Indication: SINUS NODE DYSFUNCTION
  5. RANOLAZINE. [Suspect]
     Active Substance: RANOLAZINE
     Indication: CEREBROVASCULAR ACCIDENT

REACTIONS (2)
  - Cardiac pacemaker insertion [Not Recovered/Not Resolved]
  - Off label use [Not Recovered/Not Resolved]

NARRATIVE: CASE EVENT DATE: 20180412
